FAERS Safety Report 6936070-6 (Version None)
Quarter: 2010Q3

REPORT INFORMATION
  Report Type: 
  Country: None (occurrence: None)
  Receive Date: 20100817
  Receipt Date: 20100804
  Transmission Date: 20110219
  Serious: Yes (Congenital Anomaly)
  Sender: FDA-Public Use
  Company Number: 2010VX001243

PATIENT
  Age: 30 Month
  Sex: Female

DRUGS (3)
  1. DIHYDROERGOTAMINE MESYLATE (DIHYDROERGOTAMINE MESYLATE) [Suspect]
     Indication: PRODUCT USED FOR UNKNOWN INDICATION
     Dosage: TRPL
     Route: 064
  2. CAFFEINE CITRATE [Suspect]
     Indication: PRODUCT USED FOR UNKNOWN INDICATION
     Dosage: TRPL
     Route: 064
  3. BETAHISTINE (BETAHISTINE) [Suspect]
     Indication: PRODUCT USED FOR UNKNOWN INDICATION
     Dosage: TRPL
     Route: 064

REACTIONS (4)
  - MATERNAL DRUGS AFFECTING FOETUS [None]
  - MENTAL RETARDATION [None]
  - MITOCHONDRIAL CYTOPATHY [None]
  - NERVOUS SYSTEM DISORDER [None]
